FAERS Safety Report 23082916 (Version 2)
Quarter: 2023Q4

REPORT INFORMATION
  Report Type: Spontaneous
  Country: UY (occurrence: UY)
  Receive Date: 20231019
  Receipt Date: 20231120
  Transmission Date: 20240109
  Serious: No
  Sender: FDA-Public Use
  Company Number: UY-PFIZER INC-PV202300162179

PATIENT
  Age: 2 Year
  Sex: Female

DRUGS (1)
  1. GENOTROPIN [Suspect]
     Active Substance: SOMATROPIN
     Indication: Growth hormone deficiency
     Dosage: 0.1 TO 0.5MG, 7 TIMES A WEEK
     Dates: start: 20220315

REACTIONS (2)
  - Drug dose omission by device [Not Recovered/Not Resolved]
  - Device breakage [Not Recovered/Not Resolved]
